FAERS Safety Report 21523643 (Version 3)
Quarter: 2022Q4

REPORT INFORMATION
  Report Type: Report from Study
  Country: US (occurrence: US)
  Receive Date: 20221029
  Receipt Date: 20221103
  Transmission Date: 20230113
  Serious: Yes (Other)
  Sender: FDA-Public Use
  Company Number: US-ABBVIE-4179330

PATIENT
  Age: 47 Year
  Sex: Female

DRUGS (14)
  1. RINVOQ [Suspect]
     Active Substance: UPADACITINIB
     Indication: Rheumatoid arthritis
     Dosage: 15 MILLIGRAM
     Route: 048
  2. PLAQUENR [Concomitant]
     Indication: Product used for unknown indication
     Dosage: 200 MG TABLET
  3. PENNSAID [Concomitant]
     Active Substance: DICLOFENAC SODIUM
     Indication: Product used for unknown indication
     Dosage: 20MG/G(2%) SOL MD PMF^
  4. MELOXICAM [Concomitant]
     Active Substance: MELOXICAM
     Indication: Product used for unknown indication
  5. LACTOBACILLUS ACIDOPHILUS [Concomitant]
     Active Substance: LACTOBACILLUS ACIDOPHILUS
     Indication: Product used for unknown indication
     Route: 048
  6. PATADAY TWICE DAILY RELIEF [Concomitant]
     Indication: Product used for unknown indication
  7. PANTOPRAZOLE SODIUM [Concomitant]
     Active Substance: PANTOPRAZOLE SODIUM
     Indication: Product used for unknown indication
     Dosage: 40 MG TABLED- DR
  8. ALBUTEROL SULFATE [Concomitant]
     Active Substance: ALBUTEROL SULFATE
     Indication: Product used for unknown indication
  9. EUCRISA [Concomitant]
     Active Substance: CRISABOROLE
     Indication: Product used for unknown indication
     Dosage: 2 % OINT (O).
  10. VITAMINS [Concomitant]
     Active Substance: VITAMINS
     Indication: Product used for unknown indication
  11. METOPROLOL SUCCINATE [Concomitant]
     Active Substance: METOPROLOL SUCCINATE
     Indication: Product used for unknown indication
  12. RECOMBIVAX HB [Concomitant]
     Active Substance: HEPATITIS B VIRUS SUBTYPE ADW HBSAG SURFACE PROTEIN ANTIGEN
     Indication: Product used for unknown indication
     Dosage: 10 MCG/ML SYRINGE
  13. ZYRTEC [Concomitant]
     Active Substance: CETIRIZINE HYDROCHLORIDE
     Indication: Product used for unknown indication
     Route: 048
  14. PFIZER-BIONTECH COVID-19 VACCINE [Concomitant]
     Active Substance: TOZINAMERAN
     Indication: COVID-19 immunisation
     Dosage: (12Y UP) VAC(EUA)

REACTIONS (4)
  - Systemic lupus erythematosus [Unknown]
  - Diarrhoea [Recovering/Resolving]
  - Vomiting [Unknown]
  - Nausea [Unknown]

NARRATIVE: CASE EVENT DATE: 20221024
